FAERS Safety Report 5512213-6 (Version None)
Quarter: 2007Q4

REPORT INFORMATION
  Report Type: 
  Country: None (occurrence: None)
  Receive Date: 20071108
  Receipt Date: 20071108
  Transmission Date: 20080405
  Serious: Yes (Hospitalization)
  Sender: FDA-Public Use
  Company Number: None

PATIENT
  Age: 82 Year
  Sex: Male

DRUGS (9)
  1. LIPITOR [Suspect]
     Indication: HYPERLIPIDAEMIA
     Dosage: 40 MG DAILY PO MORE THAN A YEAR
     Route: 048
  2. FLOMAX [Concomitant]
  3. LASIX [Concomitant]
  4. COREG [Concomitant]
  5. ALTACE [Concomitant]
  6. ASPIRIN [Concomitant]
  7. ZETIA [Concomitant]
  8. COUMADIN [Concomitant]
  9. AVODART [Concomitant]

REACTIONS (1)
  - MYOPATHY [None]
